FAERS Safety Report 5982494-3 (Version None)
Quarter: 2008Q4

REPORT INFORMATION
  Report Type: 
  Country: None (occurrence: None)
  Receive Date: 20081208
  Receipt Date: 20080229
  Transmission Date: 20090506
  Serious: No
  Sender: FDA-Public Use
  Company Number: US-AMGEN-KDL267709

PATIENT
  Sex: Male

DRUGS (2)
  1. ENBREL [Suspect]
     Indication: RHEUMATOID ARTHRITIS
     Dates: start: 20050322
  2. PLAQUENIL [Concomitant]

REACTIONS (2)
  - INJECTION SITE IRRITATION [None]
  - RHEUMATOID ARTHRITIS [None]
